FAERS Safety Report 6403809-8 (Version None)
Quarter: 2009Q4

REPORT INFORMATION
  Report Type: 
  Country: None (occurrence: None)
  Receive Date: 20091015
  Receipt Date: 20091015
  Transmission Date: 20100525
  Serious: No
  Sender: FDA-Public Use
  Company Number: None

PATIENT
  Age: 54 Year
  Sex: Male
  Weight: 74 kg

DRUGS (1)
  1. VARENICLINE [Suspect]
     Indication: EX-TOBACCO USER
     Dosage: 1 MG BID PO
     Route: 048
     Dates: start: 20090910

REACTIONS (2)
  - NAUSEA [None]
  - VOMITING [None]
